FAERS Safety Report 21010456 (Version 1)
Quarter: 2022Q2

REPORT INFORMATION
  Report Type: Spontaneous
  Country: CO (occurrence: CO)
  Receive Date: 20220627
  Receipt Date: 20220627
  Transmission Date: 20220720
  Serious: Yes (Other)
  Sender: FDA-Public Use
  Company Number: CO-PFIZER INC-PV202200008337

PATIENT
  Sex: Female

DRUGS (2)
  1. PALBOCICLIB [Suspect]
     Active Substance: PALBOCICLIB
     Indication: Cyst
     Dosage: 125 MG
     Route: 048
     Dates: start: 2019
  2. PALBOCICLIB [Suspect]
     Active Substance: PALBOCICLIB
     Indication: Breast cancer metastatic

REACTIONS (3)
  - Hepatic neoplasm [Unknown]
  - Off label use [Unknown]
  - Neoplasm progression [Unknown]
